FAERS Safety Report 8937111 (Version 1)
Quarter: 2012Q4

REPORT INFORMATION
  Report Type: Spontaneous
  Country: US (occurrence: None)
  Receive Date: 20121128
  Receipt Date: 20121128
  Transmission Date: 20130627
  Serious: Yes (Other)
  Sender: FDA-Public Use
  Company Number: None

PATIENT
  Age: 34 Year
  Sex: Female
  Weight: 95.26 kg

DRUGS (1)
  1. LAMISIL [Suspect]
     Indication: FUNGAL INFECTION OF NAIL
     Route: 048
     Dates: start: 20120913, end: 20121104

REACTIONS (9)
  - Palpitations [None]
  - Sleep disorder due to general medical condition, insomnia type [None]
  - Impaired work ability [None]
  - Activities of daily living impaired [None]
  - Ventricular extrasystoles [None]
  - Anxiety [None]
  - Depression [None]
  - Educational problem [None]
  - Feeling abnormal [None]
